FAERS Safety Report 22585401 (Version 1)
Quarter: 2023Q2

REPORT INFORMATION
  Report Type: Spontaneous
  Country: GB (occurrence: GB)
  Receive Date: 20230610
  Receipt Date: 20230610
  Transmission Date: 20230722
  Serious: Yes (Death)
  Sender: FDA-Public Use
  Company Number: GB-Accord-301370

PATIENT
  Age: 72 Year
  Sex: Male

DRUGS (2)
  1. PIRFENIDONE [Suspect]
     Active Substance: PIRFENIDONE
     Indication: Product used for unknown indication
     Dosage: FREQUENCY : 3 TDS
     Route: 048
     Dates: start: 202301
  2. PIRFENIDONE [Suspect]
     Active Substance: PIRFENIDONE
     Dosage: 3 DOSAGE FORMS DAILY; TAKING 1 TABLET 3 TIMES A DAY
     Route: 048

REACTIONS (5)
  - Death [Fatal]
  - Analgesic therapy [Unknown]
  - Back pain [Unknown]
  - Nausea [Unknown]
  - Incorrect dose administered [Unknown]

NARRATIVE: CASE EVENT DATE: 20230507
